FAERS Safety Report 14930207 (Version 5)
Quarter: 2018Q3

REPORT INFORMATION
  Report Type: Report from Study
  Country: CA (occurrence: CA)
  Receive Date: 20180523
  Receipt Date: 20180917
  Transmission Date: 20181010
  Serious: Yes (Death, Other)
  Sender: FDA-Public Use
  Company Number: CA-BAYER-2018-090929

PATIENT
  Age: 82 Year
  Sex: Female

DRUGS (2)
  1. STIVARGA [Suspect]
     Active Substance: REGORAFENIB
     Indication: COLORECTAL CANCER METASTATIC
     Dosage: DAILY DOSE 120 MG
     Route: 048
     Dates: end: 20180510
  2. STIVARGA [Suspect]
     Active Substance: REGORAFENIB
     Indication: COLORECTAL CANCER METASTATIC
     Dosage: DAILY DOSE 80 MG

REACTIONS (14)
  - Delirium [Not Recovered/Not Resolved]
  - Loss of consciousness [None]
  - Urinary tract infection [Unknown]
  - Asthenia [Not Recovered/Not Resolved]
  - General physical health deterioration [Unknown]
  - Feeling abnormal [None]
  - Fall [None]
  - Stomatitis [Not Recovered/Not Resolved]
  - Malaise [None]
  - Confusional state [Not Recovered/Not Resolved]
  - Off label use [None]
  - Death [Fatal]
  - Rash [Not Recovered/Not Resolved]
  - Adverse drug reaction [Not Recovered/Not Resolved]

NARRATIVE: CASE EVENT DATE: 201805
